FAERS Safety Report 4442897-5 (Version None)
Quarter: 2004Q3

REPORT INFORMATION
  Report Type: 
  Country: None (occurrence: None)
  Receive Date: 20040907
  Receipt Date: 20040907
  Transmission Date: 20050211
  Serious: Yes (Hospitalization)
  Sender: FDA-Public Use
  Company Number: None

PATIENT

DRUGS (2)
  1. NAFCILLIN SODIUM [Suspect]
  2. RIFAMPIN [Suspect]

REACTIONS (1)
  - RENAL FAILURE ACUTE [None]
